FAERS Safety Report 12216796 (Version 1)
Quarter: 2016Q1

REPORT INFORMATION
  Report Type: Spontaneous
  Country: None (occurrence: None)
  Receive Date: 20160328
  Receipt Date: 20160328
  Transmission Date: 20160526
  Serious: Yes (Other)
  Sender: FDA-Public Use
  Company Number: None

PATIENT
  Age: 54 Year
  Sex: Female
  Weight: 91.63 kg

DRUGS (12)
  1. LAMICTYL [Concomitant]
  2. LIDOCAINE PATCH [Concomitant]
     Active Substance: LIDOCAINE
  3. CHILDREN^S MULTI VITAMIN [Concomitant]
  4. VITAMIN D3 [Concomitant]
     Active Substance: CHOLECALCIFEROL
  5. PROTONIX [Concomitant]
     Active Substance: PANTOPRAZOLE SODIUM
  6. TUMS [Concomitant]
     Active Substance: CALCIUM CARBONATE
  7. HAIR AND NAIL VITAMIN [Concomitant]
  8. TRIAMPTERINE [Concomitant]
  9. IBUPROPHEN [Concomitant]
     Active Substance: IBUPROFEN
  10. CYCLOBENZAPRINE [Concomitant]
     Active Substance: CYCLOBENZAPRINE
  11. NAPROXINE [Concomitant]
  12. CONTRAVE [Suspect]
     Active Substance: BUPROPION HYDROCHLORIDE\NALTREXONE HYDROCHLORIDE
     Indication: WEIGHT DECREASED
     Dosage: 66 TABLET(S) TITRATE OVER 3 WEE TAKEN BY MOUTH
     Route: 048

REACTIONS (11)
  - Abdominal pain [None]
  - Insomnia [None]
  - Dysphonia [None]
  - Decreased interest [None]
  - Dry mouth [None]
  - Headache [None]
  - Social avoidant behaviour [None]
  - Food craving [None]
  - Bipolar disorder [None]
  - Anxiety [None]
  - Pain [None]

NARRATIVE: CASE EVENT DATE: 20160327
